FAERS Safety Report 21299660 (Version 3)
Quarter: 2022Q3

REPORT INFORMATION
  Report Type: Report from Study
  Country: JP (occurrence: JP)
  Receive Date: 20220906
  Receipt Date: 20220916
  Transmission Date: 20221027
  Serious: Yes (Death, Hospitalization)
  Sender: FDA-Public Use
  Company Number: JP-PFIZER INC-PV202200053830

PATIENT
  Age: 95 Year
  Sex: Female
  Weight: 26.6 kg

DRUGS (5)
  1. NIRMATRELVIR\RITONAVIR [Suspect]
     Active Substance: NIRMATRELVIR\RITONAVIR
     Indication: COVID-19 treatment
     Dosage: [PF-07321332 150 MG]/[RITONAVIR 100 MG]; 2X/DAY
     Dates: start: 20220422, end: 20220426
  2. AMINO ACIDS\DEXTROSE\ELECTROLYTES NOS\VITAMINS [Concomitant]
     Active Substance: AMINO ACIDS\DEXTROSE\ELECTROLYTES NOS\VITAMINS
     Dosage: UNK
     Dates: start: 20220227, end: 20220505
  3. AMPICILLIN SODIUM\SULBACTAM SODIUM [Concomitant]
     Active Substance: AMPICILLIN SODIUM\SULBACTAM SODIUM
     Indication: Pneumonia bacterial
     Dosage: UNK
     Dates: start: 20220428, end: 20220502
  4. OXYGEN [Concomitant]
     Active Substance: OXYGEN
     Indication: Infection
     Dosage: UNK
     Dates: start: 20220423, end: 20220509
  5. OXYGEN [Concomitant]
     Active Substance: OXYGEN
     Indication: COVID-19

REACTIONS (1)
  - Marasmus [Fatal]

NARRATIVE: CASE EVENT DATE: 20220516
